FAERS Safety Report 16900208 (Version 1)
Quarter: 2019Q4

REPORT INFORMATION
  Report Type: Spontaneous
  Country: US (occurrence: US)
  Receive Date: 20190815
  Receipt Date: 20190815
  Transmission Date: 20200122
  Serious: No
  Sender: FDA-Public Use
  Company Number: None

PATIENT
  Age: 75 Year
  Sex: Male
  Weight: 96.62 kg

DRUGS (10)
  1. GLIMEPIRIDE. [Concomitant]
     Active Substance: GLIMEPIRIDE
  2. IRBESARTAN. [Suspect]
     Active Substance: IRBESARTAN
  3. ONE TOUCH ULTRA BLUE TEST STRIPS [Concomitant]
  4. ARTHRITIS PAIN RELIEVER [Concomitant]
     Active Substance: ACETAMINOPHEN
  5. ELIQUIS [Concomitant]
     Active Substance: APIXABAN
  6. ASPIRIN. [Concomitant]
     Active Substance: ASPIRIN
  7. LOSARTAN 50MG TABLETS [Suspect]
     Active Substance: LOSARTAN
     Indication: HYPERTENSION
     Dosage: ?          QUANTITY:1 DF DOSAGE FORM;?
     Route: 048
     Dates: start: 20190405, end: 20190423
  8. METOPROLOL TART [Concomitant]
     Active Substance: METOPROLOL TARTRATE
  9. BLOOD PRESSURE TESTER CATH. [Concomitant]
  10. METFORMIN HCL [Concomitant]
     Active Substance: METFORMIN HYDROCHLORIDE

REACTIONS (7)
  - Burning sensation [None]
  - Peripheral swelling [None]
  - Recalled product administered [None]
  - Asthenia [None]
  - Fatigue [None]
  - Arthralgia [None]
  - Musculoskeletal pain [None]

NARRATIVE: CASE EVENT DATE: 20190420
